FAERS Safety Report 9648701 (Version 1)
Quarter: 2013Q4

REPORT INFORMATION
  Report Type: Spontaneous
  Country: US (occurrence: US)
  Receive Date: 20131028
  Receipt Date: 20131028
  Transmission Date: 20140711
  Serious: No
  Sender: FDA-Public Use
  Company Number: US-MYLANLABS-2013S1018178

PATIENT
  Age: 66 Year
  Sex: Female
  Weight: 81.65 kg

DRUGS (7)
  1. RISPERIDONE TABLETS USP [Suspect]
     Indication: ANXIETY
     Route: 048
     Dates: start: 2012, end: 201308
  2. RISPERIDONE TABLETS USP [Suspect]
     Indication: OFF LABEL USE
     Route: 048
     Dates: start: 2012, end: 201308
  3. RISPERIDONE TABLETS USP [Suspect]
     Indication: ANXIETY
     Route: 048
     Dates: start: 201308
  4. RISPERIDONE TABLETS USP [Suspect]
     Indication: OFF LABEL USE
     Route: 048
     Dates: start: 201308
  5. LEVOTHYROXINE [Concomitant]
     Indication: HYPOTHYROIDISM
  6. CLONAZEPAM [Concomitant]
  7. FLUVOXAMINE [Concomitant]
     Indication: OBSESSIVE-COMPULSIVE DISORDER

REACTIONS (4)
  - Agitation [Not Recovered/Not Resolved]
  - Nervousness [Not Recovered/Not Resolved]
  - Myalgia [Not Recovered/Not Resolved]
  - Lymph node pain [Not Recovered/Not Resolved]
